FAERS Safety Report 18845270 (Version 6)
Quarter: 2021Q1

REPORT INFORMATION
  Report Type: Spontaneous
  Country: US (occurrence: US)
  Receive Date: 20210204
  Receipt Date: 20210222
  Transmission Date: 20210419
  Serious: Yes (Life-Threatening, Hospitalization)
  Sender: FDA-Public Use
  Company Number: US-CELGENEUS-USA-20210200593

PATIENT
  Age: 73 Year
  Sex: Male
  Weight: 74.4 kg

DRUGS (17)
  1. ALVOCIDIB [Suspect]
     Active Substance: ALVOCIDIB
     Indication: MYELODYSPLASTIC SYNDROME
     Route: 041
     Dates: start: 20200526, end: 20200713
  2. CIPROFLOXACIN HCL [Concomitant]
     Active Substance: CIPROFLOXACIN HYDROCHLORIDE
     Indication: INFECTION PROPHYLAXIS
     Route: 048
     Dates: start: 20190801
  3. AZACITIDINE. [Suspect]
     Active Substance: AZACITIDINE
     Route: 058
     Dates: start: 20200602, end: 20200603
  4. OMEPRAZOLE. [Concomitant]
     Active Substance: OMEPRAZOLE
     Indication: GASTROOESOPHAGEAL REFLUX DISEASE
     Route: 065
     Dates: start: 2007
  5. FLUCONAZOLE. [Concomitant]
     Active Substance: FLUCONAZOLE
     Indication: INFECTION PROPHYLAXIS
     Route: 048
     Dates: start: 201908
  6. DOCUSATE [Concomitant]
     Active Substance: DOCUSATE
     Indication: CONSTIPATION PROPHYLAXIS
     Route: 048
     Dates: start: 20200725
  7. AZACITIDINE. [Suspect]
     Active Substance: AZACITIDINE
     Route: 058
     Dates: start: 20200831, end: 20200901
  8. AZACITIDINE. [Suspect]
     Active Substance: AZACITIDINE
     Route: 058
     Dates: start: 20200620, end: 20200621
  9. ALVOCIDIB [Suspect]
     Active Substance: ALVOCIDIB
     Route: 041
     Dates: start: 20200714, end: 20200823
  10. ALENDRONATE [Concomitant]
     Active Substance: ALENDRONATE SODIUM
     Indication: OSTEOPOROSIS
     Route: 065
     Dates: start: 2016
  11. AZACITIDINE. [Suspect]
     Active Substance: AZACITIDINE
     Dosage: 75 MILLIGRAM/SQ. METER (DAY 1 TO 5 AND DAY 8 AND 9)
     Route: 058
     Dates: start: 20200713, end: 20200717
  12. SENNA LAXATIVE AND DOCUSATE SODIUM [Concomitant]
     Indication: CONSTIPATION
     Route: 065
     Dates: start: 201908
  13. AZACITIDINE. [Suspect]
     Active Substance: AZACITIDINE
     Indication: MYELODYSPLASTIC SYNDROME
     Dosage: 75 MILLIGRAM/SQ. METER (DAY 1 TO 5 AND DAY 8 AND 9)
     Route: 058
     Dates: start: 20200526, end: 20200530
  14. ACYCLOVIR. [Concomitant]
     Active Substance: ACYCLOVIR
     Indication: INFECTION PROPHYLAXIS
     Route: 048
     Dates: start: 201908
  15. ALVOCIDIB [Suspect]
     Active Substance: ALVOCIDIB
     Route: 041
     Dates: start: 20200824, end: 20200902
  16. POLYETHYLENE GLYCOL [Concomitant]
     Active Substance: POLYETHYLENE GLYCOLS
     Indication: CONSTIPATION
     Route: 048
     Dates: start: 20200526
  17. AZACITIDINE. [Suspect]
     Active Substance: AZACITIDINE
     Dosage: 100 MILLIGRAM/SQ. METER (DAY 1 TO 5 AND DAYS 8 AND 9)
     Route: 058
     Dates: start: 20200824, end: 20200828

REACTIONS (3)
  - Respiratory failure [Recovered/Resolved]
  - Lower gastrointestinal haemorrhage [Recovered/Resolved]
  - Pneumonia aspiration [Recovered/Resolved]

NARRATIVE: CASE EVENT DATE: 20200902
